FAERS Safety Report 9339529 (Version 1)
Quarter: 2013Q2

REPORT INFORMATION
  Report Type: Report from Study
  Country: US (occurrence: US)
  Receive Date: 20130610
  Receipt Date: 20130610
  Transmission Date: 20140414
  Serious: Yes (Hospitalization)
  Sender: FDA-Public Use
  Company Number: US-TEVA-390122USA

PATIENT
  Age: 60 Year
  Sex: Female

DRUGS (1)
  1. COPAXONE [Suspect]
     Indication: MULTIPLE SCLEROSIS
     Dates: start: 20121217, end: 20130216

REACTIONS (4)
  - Disorientation [Recovered/Resolved]
  - Ammonia increased [Recovered/Resolved]
  - Liver function test abnormal [Recovered/Resolved]
  - Urinary tract infection [Recovered/Resolved]
